FAERS Safety Report 7601425-3 (Version None)
Quarter: 2011Q3

REPORT INFORMATION
  Report Type: 
  Country: None (occurrence: None)
  Receive Date: 20110711
  Receipt Date: 20110705
  Transmission Date: 20111222
  Serious: Yes (Hospitalization)
  Sender: FDA-Public Use
  Company Number: CA-MERCK-1107USA00383

PATIENT
  Age: 58 Year
  Sex: Female

DRUGS (21)
  1. ALENDRONATE SODIUM [Concomitant]
     Route: 065
  2. ERGOCALCIFEROL [Concomitant]
     Route: 065
  3. TIMOLOL [Concomitant]
     Route: 047
  4. VALPROATE SODIUM [Suspect]
     Route: 065
  5. VALPROATE SODIUM [Suspect]
     Route: 065
  6. INVANZ [Suspect]
     Route: 042
  7. CALCIUM (UNSPECIFIED) [Concomitant]
     Route: 065
  8. AMIKACIN SULFATE [Concomitant]
     Route: 042
  9. BRIMONIDINE TARTRATE [Concomitant]
     Route: 047
  10. VALPROATE SODIUM [Suspect]
     Route: 065
  11. FUROSEMIDE [Concomitant]
     Route: 065
  12. GENTAMICIN [Concomitant]
     Route: 065
  13. LANSOPRAZOLE [Concomitant]
     Route: 065
  14. POTASSIUM CHLORIDE [Concomitant]
     Route: 065
  15. VALPROATE SODIUM [Suspect]
     Route: 065
  16. VALPROATE SODIUM [Suspect]
     Route: 065
  17. NITROFURANTOIN [Concomitant]
     Route: 065
  18. CEFTRIAXONE SODIUM [Concomitant]
     Route: 065
  19. XALATAN [Concomitant]
     Route: 047
  20. AMITRIPTYLINE HYDROCHLORIDE [Concomitant]
     Route: 065
  21. BACLOFEN [Concomitant]
     Route: 065

REACTIONS (2)
  - DRUG INTERACTION [None]
  - ANTICONVULSANT DRUG LEVEL DECREASED [None]
